FAERS Safety Report 7898323-7 (Version None)
Quarter: 2011Q4

REPORT INFORMATION
  Report Type: 
  Country: None (occurrence: None)
  Receive Date: 20111107
  Receipt Date: 20111028
  Transmission Date: 20120403
  Serious: Yes (Other)
  Sender: FDA-Public Use
  Company Number: US-ASTRAZENECA-2011SE04663

PATIENT
  Age: 70 Year
  Sex: Female

DRUGS (19)
  1. SEROQUEL [Suspect]
     Indication: INSOMNIA
     Route: 048
     Dates: start: 20030101
  2. SEROQUEL [Suspect]
     Indication: SLEEP DISORDER
     Route: 048
     Dates: start: 20030101
  3. SEROQUEL [Suspect]
     Route: 048
  4. METOPROLOL [Concomitant]
     Dosage: 50 MG IN THE MORNING
     Route: 048
  5. SEROQUEL [Suspect]
     Route: 048
  6. SEROQUEL [Suspect]
     Route: 048
  7. SEROQUEL [Suspect]
     Route: 048
  8. METOPROLOL [Concomitant]
     Dosage: 100 ER
  9. SEROQUEL [Suspect]
     Indication: POST-TRAUMATIC STRESS DISORDER
     Route: 048
     Dates: start: 20030101
  10. SEROQUEL [Suspect]
     Route: 048
  11. SEROQUEL [Suspect]
     Route: 048
  12. SIMVASTATIN [Concomitant]
  13. LEVOTHYROXINE SODIUM [Concomitant]
  14. SEROQUEL [Suspect]
     Route: 048
  15. METOPROLOL [Concomitant]
     Indication: HYPERTENSION
     Dosage: 50 MG IN THE MORNING AND AT BEDTIME
     Route: 048
     Dates: start: 20080901
  16. PLAVIX [Concomitant]
  17. SEROQUEL [Suspect]
     Route: 048
  18. SEROQUEL [Suspect]
     Route: 048
  19. LORAZEPAM [Concomitant]

REACTIONS (7)
  - VICTIM OF SEXUAL ABUSE [None]
  - MATERNAL EXPOSURE DURING PREGNANCY [None]
  - OFF LABEL USE [None]
  - DRUG INEFFECTIVE FOR UNAPPROVED INDICATION [None]
  - DELUSIONAL PERCEPTION [None]
  - INSOMNIA [None]
  - THERAPEUTIC RESPONSE UNEXPECTED [None]
